FAERS Safety Report 11904430 (Version 2)
Quarter: 2016Q1

REPORT INFORMATION
  Report Type: Spontaneous
  Country: US (occurrence: US)
  Receive Date: 20160111
  Receipt Date: 20160304
  Transmission Date: 20160526
  Serious: No
  Sender: FDA-Public Use
  Company Number: US-ASTRAZENECA-2016SE01736

PATIENT
  Age: 49 Year
  Sex: Female
  Weight: 125 kg

DRUGS (7)
  1. NEXIUM 24HR [Suspect]
     Active Substance: ESOMEPRAZOLE MAGNESIUM
     Indication: DYSPEPSIA
     Route: 048
     Dates: start: 201512
  2. HEMATIN [Concomitant]
     Active Substance: HEMATIN
     Indication: MINERAL SUPPLEMENTATION
     Dosage: EVERY OTHER DAY
     Route: 048
     Dates: start: 201510
  3. NEXIUM 24HR [Suspect]
     Active Substance: ESOMEPRAZOLE MAGNESIUM
     Indication: DYSPEPSIA
     Route: 048
     Dates: start: 201512
  4. PROGESTERONE. [Concomitant]
     Active Substance: PROGESTERONE
     Indication: MENOPAUSE
     Route: 048
     Dates: start: 201510
  5. NEXIUM 24HR [Suspect]
     Active Substance: ESOMEPRAZOLE MAGNESIUM
     Indication: GASTROOESOPHAGEAL REFLUX DISEASE
     Route: 048
     Dates: start: 201512
  6. NEXIUM 24HR [Suspect]
     Active Substance: ESOMEPRAZOLE MAGNESIUM
     Indication: GASTROOESOPHAGEAL REFLUX DISEASE
     Route: 048
     Dates: start: 201512
  7. PROGESTERONE. [Concomitant]
     Active Substance: PROGESTERONE
     Indication: HORMONE LEVEL ABNORMAL
     Route: 048
     Dates: start: 201510

REACTIONS (4)
  - Product quality issue [Unknown]
  - Gastrooesophageal reflux disease [Not Recovered/Not Resolved]
  - Intentional product misuse [Not Recovered/Not Resolved]
  - Drug ineffective [Not Recovered/Not Resolved]

NARRATIVE: CASE EVENT DATE: 201512
